FAERS Safety Report 18043589 (Version 1)
Quarter: 2020Q3

REPORT INFORMATION
  Report Type: Spontaneous
  Country: US (occurrence: US)
  Receive Date: 20200717
  Receipt Date: 20200717
  Transmission Date: 20201103
  Serious: No
  Sender: FDA-Public Use
  Company Number: None

PATIENT
  Age: 51 Year
  Sex: Female
  Weight: 56.25 kg

DRUGS (1)
  1. ZOLPIDEM MFG AUROBINO 10 MG [Suspect]
     Active Substance: ZOLPIDEM TARTRATE
     Indication: INSOMNIA
     Dosage: ?          QUANTITY:30 TABLET(S);?
     Route: 048
     Dates: start: 20190507, end: 20190509

REACTIONS (5)
  - Palpitations [None]
  - Manufacturing issue [None]
  - Product substitution issue [None]
  - Insomnia [None]
  - Hypoaesthesia [None]

NARRATIVE: CASE EVENT DATE: 20190507
